FAERS Safety Report 8422089-5 (Version None)
Quarter: 2012Q2

REPORT INFORMATION
  Report Type: 
  Country: None (occurrence: None)
  Receive Date: 20120608
  Receipt Date: 20120525
  Transmission Date: 20120825
  Serious: Yes (Hospitalization)
  Sender: FDA-Public Use
  Company Number: US-ROCHE-1075979

PATIENT
  Sex: Female

DRUGS (11)
  1. PAXIL [Concomitant]
  2. PEGASYS [Suspect]
     Indication: HEPATITIS C
     Dosage: 180 MCG 1 IN I WEEK
     Route: 058
     Dates: start: 20120502, end: 20120524
  3. COPEGUS [Suspect]
     Indication: HEPATITIS C
     Route: 048
     Dates: start: 20120502, end: 20120524
  4. HYDROCODONE [Concomitant]
  5. VITAMIN B-12 [Concomitant]
  6. FISH OIL [Concomitant]
  7. MORPHINE SULFATE [Concomitant]
  8. MULTI-VITAMIN [Concomitant]
  9. TRAZODONE HCL [Concomitant]
  10. TELAPREVIR [Suspect]
     Indication: HEPATITIS C
     Route: 048
     Dates: start: 20120502, end: 20120524
  11. XANAX [Concomitant]

REACTIONS (4)
  - HYPOXIA [None]
  - ANAEMIA [None]
  - PNEUMONIA [None]
  - HYPOTENSION [None]
